FAERS Safety Report 8257463-3 (Version None)
Quarter: 2012Q1

REPORT INFORMATION
  Report Type: 
  Country: None (occurrence: None)
  Receive Date: 20120330
  Receipt Date: 20120330
  Transmission Date: 20120608
  Serious: Yes (Life-Threatening, Hospitalization, Disabling)
  Sender: FDA-Public Use
  Company Number: None

PATIENT
  Sex: Male
  Weight: 88.4514 kg

DRUGS (2)
  1. OMNISCAN [Suspect]
     Indication: IMAGING PROCEDURE
     Dosage: 20.0 INTRAVENOUS
     Route: 042
     Dates: start: 20090224
  2. SODIUM CHLORIDE 0.9% [Suspect]
     Indication: IMAGING PROCEDURE
     Dosage: 40.0 ML INTRAVENOUS
     Route: 042
     Dates: start: 20090224

REACTIONS (6)
  - COMA [None]
  - PYREXIA [None]
  - PAIN [None]
  - MYALGIA [None]
  - ERYTHEMA [None]
  - UNEVALUABLE EVENT [None]
